FAERS Safety Report 8988565 (Version 1)
Quarter: 2012Q4

REPORT INFORMATION
  Report Type: 
  Country: ES (occurrence: ES)
  Receive Date: 20121228
  Receipt Date: 20121228
  Transmission Date: 20130627
  Serious: Yes (Other)
  Sender: FDA-Public Use
  Company Number: ES-PFIZER INC-2012330265

PATIENT
  Age: 52 Year
  Sex: Male

DRUGS (6)
  1. LYRICA [Suspect]
     Indication: ANXIETY
     Dosage: 75 mg, 1x/day
     Route: 048
     Dates: start: 201212, end: 201212
  2. LYRICA [Suspect]
     Dosage: 75 mg, 2x/day
     Route: 048
     Dates: start: 201212
  3. NEURONTIN [Suspect]
     Indication: ANXIETY
     Dosage: 400 mg, 3x/day
     Route: 048
     Dates: start: 201209, end: 2012
  4. ATARAX [Concomitant]
     Indication: ANXIETY
     Dosage: UNK
     Dates: start: 201209
  5. SUMIAL [Concomitant]
     Indication: ANXIETY
     Dosage: 25 mg, 2x/day
     Dates: start: 201209
  6. CAPOTEN [Concomitant]
     Indication: HYPERTENSION ARTERIAL
     Dosage: 25 mg, 2x/day
     Dates: start: 201209

REACTIONS (2)
  - Maculopathy [Not Recovered/Not Resolved]
  - Off label use [Unknown]
